FAERS Safety Report 8240306-1 (Version None)
Quarter: 2012Q1

REPORT INFORMATION
  Report Type: 
  Country: None (occurrence: None)
  Receive Date: 20120328
  Receipt Date: 20120320
  Transmission Date: 20120608
  Serious: No
  Sender: FDA-Public Use
  Company Number: US-ELI_LILLY_AND_COMPANY-US201112001098

PATIENT
  Sex: Female
  Weight: 60 kg

DRUGS (9)
  1. OXYCONTIN [Concomitant]
     Dosage: 20 MG, BID
  2. FORTEO [Suspect]
     Dosage: 20 UG, QD
     Route: 058
     Dates: start: 20110121
  3. LEXAPRO [Concomitant]
  4. FORTEO [Suspect]
     Indication: OSTEOPOROSIS
     Dosage: 20 UG, QD
     Route: 058
     Dates: start: 20100920
  5. VALIUM [Concomitant]
  6. EFFEXOR [Concomitant]
  7. HYDROMORPHONE HCL [Concomitant]
  8. FORTEO [Suspect]
     Dosage: 20 UG, QD
     Route: 058
     Dates: end: 20110817
  9. FORTEO [Suspect]
     Dosage: 20 UG, QD
     Route: 058
     Dates: end: 20110107

REACTIONS (3)
  - MUSCLE SPASMS [None]
  - RIB DEFORMITY [None]
  - ARTHROPATHY [None]
